FAERS Safety Report 14608284 (Version 1)
Quarter: 2018Q1

REPORT INFORMATION
  Report Type: Spontaneous
  Country: CN (occurrence: CN)
  Receive Date: 20180307
  Receipt Date: 20180307
  Transmission Date: 20180509
  Serious: Yes (Other)
  Sender: FDA-Public Use
  Company Number: CN-PFIZER INC-2018092227

PATIENT
  Age: 90 Year
  Sex: Male
  Weight: 51 kg

DRUGS (6)
  1. CEFTAZIDIME. [Suspect]
     Active Substance: CEFTAZIDIME
     Indication: LUNG INFECTION
     Dosage: 1 G, 2X/DAY
     Route: 041
     Dates: start: 20180111, end: 20180118
  2. ZITHROMAX [Suspect]
     Active Substance: AZITHROMYCIN DIHYDRATE
     Indication: LUNG INFECTION
     Dosage: 0.5 G, 1X/DAY
     Route: 041
     Dates: start: 20180111, end: 20180113
  3. HARNAL [Concomitant]
     Active Substance: TAMSULOSIN HYDROCHLORIDE
     Indication: BENIGN PROSTATIC HYPERPLASIA
     Dosage: 0.2 MG, 1X/DAY
     Route: 048
     Dates: start: 20180111, end: 20180119
  4. MONTELUKAST SODIUM. [Concomitant]
     Active Substance: MONTELUKAST SODIUM
     Indication: LUNG INFECTION
     Dosage: 10 MG, 1X/DAY
     Route: 048
     Dates: start: 20180111, end: 20180119
  5. TAMIFLU [Concomitant]
     Active Substance: OSELTAMIVIR PHOSPHATE
     Indication: LUNG INFECTION
     Dosage: 75 MG, 2X/DAY
     Route: 048
     Dates: start: 20180113, end: 20180118
  6. PROSCAR [Concomitant]
     Active Substance: FINASTERIDE
     Indication: BENIGN PROSTATIC HYPERPLASIA
     Dosage: 5 MG, 1X/DAY
     Route: 048
     Dates: start: 20180111, end: 20180119

REACTIONS (2)
  - Platelet count decreased [Unknown]
  - Granulocyte count decreased [Unknown]

NARRATIVE: CASE EVENT DATE: 20180112
